FAERS Safety Report 12479467 (Version 1)
Quarter: 2016Q2

REPORT INFORMATION
  Report Type: Spontaneous
  Country: US (occurrence: None)
  Receive Date: 20160617
  Receipt Date: 20160617
  Transmission Date: 20160815
  Serious: Yes (Hospitalization)
  Sender: FDA-Public Use
  Company Number: None

PATIENT
  Age: 52 Year
  Sex: Male

DRUGS (9)
  1. AMPYRA [Suspect]
     Active Substance: DALFAMPRIDINE
     Indication: MULTIPLE SCLEROSIS
     Route: 048
     Dates: start: 201512
  2. METHENAMINE [Concomitant]
     Active Substance: METHENAMINE
  3. BACLOFEN. [Concomitant]
     Active Substance: BACLOFEN
  4. ESCITALOPRAM [Concomitant]
     Active Substance: ESCITALOPRAM OXALATE
  5. METOPROLOL. [Concomitant]
     Active Substance: METOPROLOL
  6. GABAPENTIN 100 MG [Concomitant]
     Active Substance: GABAPENTIN
  7. FOLIC ACID. [Concomitant]
     Active Substance: FOLIC ACID
  8. GILENYA [Concomitant]
     Active Substance: FINGOLIMOD HYDROCHLORIDE
  9. QUETIQPINE 100 MG [Concomitant]

REACTIONS (5)
  - Abdominal pain upper [None]
  - Intentional overdose [None]
  - Suicidal ideation [None]
  - Feeling guilty [None]
  - Depressed mood [None]

NARRATIVE: CASE EVENT DATE: 20160606
